FAERS Safety Report 8574112-5 (Version None)
Quarter: 2012Q3

REPORT INFORMATION
  Report Type: 
  Country: None (occurrence: None)
  Receive Date: 20120806
  Receipt Date: 20120802
  Transmission Date: 20120928
  Serious: Yes (Hospitalization)
  Sender: FDA-Public Use
  Company Number: PHHO2012BE010098

PATIENT
  Sex: Male
  Weight: 86.7 kg

DRUGS (15)
  1. TRAZODONE HYDROCHLORIDE [Concomitant]
     Indication: DEPRESSION
     Dosage: 100 MG, QD
     Route: 048
     Dates: start: 20110301
  2. AMLODIPINE BESYLATE [Concomitant]
     Indication: HYPERTENSION
     Dosage: 5 MG, QD
     Route: 048
     Dates: start: 20120613
  3. DEXAMETHASONE [Suspect]
     Dosage: 4 MG, QD
     Route: 048
     Dates: start: 20120427
  4. DOMPERIDONE [Concomitant]
     Indication: PROPHYLAXIS
     Dosage: 20 MG, QD
     Route: 048
     Dates: start: 20120427
  5. CACIT D3 [Concomitant]
     Indication: METASTASES TO BONE
     Dosage: 1 DF, QD
     Dates: start: 20120621
  6. ZOMETA [Concomitant]
     Indication: METASTASES TO BONE
     Dosage: 4 MG Q3W
     Route: 042
     Dates: start: 20120621
  7. STEOVIT D3 [Concomitant]
     Indication: METASTASES TO BONE
     Dosage: 1 DF, QD
     Route: 048
     Dates: start: 20120621
  8. DEPAKENE [Concomitant]
     Indication: METASTASES TO CENTRAL NERVOUS SYSTEM
     Dosage: 500 MG, TID
     Route: 048
     Dates: start: 20120427
  9. KEPPRA [Concomitant]
     Indication: METASTASES TO CENTRAL NERVOUS SYSTEM
     Dosage: 500 MG, QD
     Route: 048
     Dates: start: 20120707
  10. LDK378 [Suspect]
     Indication: ANAPLASTIC LYMPHOMA KINASE GENE MUTATION
     Dosage: 750 MG, QD
     Route: 048
     Dates: start: 20120621, end: 20120712
  11. XANAX [Concomitant]
     Indication: ANXIETY
     Dosage: 0.25 MG, BID
     Route: 048
     Dates: start: 20120628
  12. MOVIPREP [Concomitant]
     Indication: CONSTIPATION PROPHYLAXIS
     Dosage: 1 DF, PRN
     Dates: start: 20120705
  13. PANTOPRAZOLE [Concomitant]
     Dosage: 20 MG, QD
     Route: 048
     Dates: start: 20120427
  14. LDK378 [Suspect]
     Dosage: 600 MG, QD
     Route: 048
     Dates: start: 20120713
  15. INNOHEP [Concomitant]
     Indication: PULMONARY EMBOLISM
     Dosage: 0.8 ML, QD
     Route: 058
     Dates: start: 20120619

REACTIONS (2)
  - GENERAL PHYSICAL HEALTH DETERIORATION [None]
  - HYPERGLYCAEMIA [None]
